FAERS Safety Report 5043202-6 (Version None)
Quarter: 2006Q2

REPORT INFORMATION
  Report Type: 
  Country: None (occurrence: None)
  Receive Date: 20060628
  Receipt Date: 20060615
  Transmission Date: 20061013
  Serious: No
  Sender: FDA-Public Use
  Company Number: 2006PL000020

PATIENT
  Age: 36 Year
  Sex: Female

DRUGS (4)
  1. IMURAN [Suspect]
     Indication: RENAL TRANSPLANT
  2. PREDNISONE TAB [Suspect]
     Indication: RENAL TRANSPLANT
  3. CYCLOSPORINE [Suspect]
     Indication: RENAL TRANSPLANT
  4. ACYCLOVIR [Concomitant]

REACTIONS (10)
  - COMPLICATIONS OF TRANSPLANTED KIDNEY [None]
  - DIFFUSE LARGE B-CELL LYMPHOMA [None]
  - ERYTHEMA [None]
  - GAMMOPATHY [None]
  - OEDEMA PERIPHERAL [None]
  - PARAPROTEINAEMIA [None]
  - PLASMABLASTIC LYMPHOMA [None]
  - RENAL CYST [None]
  - RENAL MASS [None]
  - THERAPY NON-RESPONDER [None]
